FAERS Safety Report 8559512-1 (Version None)
Quarter: 2012Q3

REPORT INFORMATION
  Report Type: 
  Country: None (occurrence: None)
  Receive Date: 20120802
  Receipt Date: 20120725
  Transmission Date: 20120928
  Serious: Yes (Hospitalization, Other)
  Sender: FDA-Public Use
  Company Number: US-BAYER-2011-091637

PATIENT
  Age: 26 Year
  Sex: Female
  Weight: 98 kg

DRUGS (1)
  1. YAZ [Suspect]
     Indication: CONTRACEPTION
     Dosage: UNK
     Dates: start: 20070901, end: 20080301

REACTIONS (8)
  - EMOTIONAL DISTRESS [None]
  - CHOLECYSTECTOMY [None]
  - ANXIETY [None]
  - CHOLECYSTITIS CHRONIC [None]
  - INJURY [None]
  - GENERAL PHYSICAL HEALTH DETERIORATION [None]
  - ANHEDONIA [None]
  - PAIN [None]
